FAERS Safety Report 17360052 (Version 1)
Quarter: 2020Q1

REPORT INFORMATION
  Report Type: Report from Study
  Country: ES (occurrence: ES)
  Receive Date: 20200203
  Receipt Date: 20200203
  Transmission Date: 20200409
  Serious: Yes (Hospitalization)
  Sender: FDA-Public Use
  Company Number: ES-TEVA-2020-ES-1177762

PATIENT
  Age: 71 Year
  Sex: Male

DRUGS (6)
  1. CARVEDILOL (2431A) [Suspect]
     Active Substance: CARVEDILOL
     Indication: HYPERTENSION
     Dosage: 25 MG PER DAY
     Route: 048
     Dates: end: 20180130
  2. TROMALYT [Interacting]
     Active Substance: ASPIRIN
     Indication: ISCHAEMIC CARDIOMYOPATHY
     Dosage: 150 MG PER DAY
     Route: 048
     Dates: end: 20180130
  3. BICALUTAMIDA (2713A) [Concomitant]
     Active Substance: BICALUTAMIDE
     Indication: NEOPLASM PROSTATE
     Dosage: 50 MG PER DAY
     Route: 048
     Dates: start: 20170530, end: 20180130
  4. RAMIPRIL (2497A) [Interacting]
     Active Substance: RAMIPRIL
     Indication: HYPERTENSION
     Dosage: 5 MG PER DAY
     Route: 048
     Dates: start: 20110103, end: 20180130
  5. FUROSEMIDA (1615A) [Interacting]
     Active Substance: FUROSEMIDE
     Indication: HYPERTENSION
     Dosage: 40 MG PER DAY
     Route: 048
     Dates: start: 20140529, end: 20180130
  6. INEGY 10 MG/40 MG COMPRIMIDOS , 28 COMPRIMIDOS [Concomitant]
     Indication: DYSLIPIDAEMIA
     Dosage: 40 MG PER DAY
     Route: 048
     Dates: start: 20110103, end: 20180130

REACTIONS (2)
  - Acute kidney injury [Recovering/Resolving]
  - Drug interaction [Unknown]

NARRATIVE: CASE EVENT DATE: 201801
